FAERS Safety Report 15291911 (Version 4)
Quarter: 2018Q4

REPORT INFORMATION
  Report Type: Spontaneous
  Country: US (occurrence: US)
  Receive Date: 20180817
  Receipt Date: 20181108
  Transmission Date: 20190204
  Serious: Yes (Other)
  Sender: FDA-Public Use
  Company Number: PHEH2018US033373

PATIENT
  Age: 69 Year
  Sex: Male

DRUGS (4)
  1. AFINITOR [Suspect]
     Active Substance: EVEROLIMUS
     Indication: RENAL CANCER
     Dosage: 5 MG, QD (ONCE DAILY)
     Route: 048
     Dates: end: 201810
  2. LENVATINIB [Suspect]
     Active Substance: LENVATINIB
     Dosage: 10 MG, QD (ONCE DAILY)
     Route: 048
  3. LENVATINIB [Suspect]
     Active Substance: LENVATINIB
     Indication: RENAL CANCER
     Dosage: 10 MG, QD (ONCE DAILY)
     Route: 048
     Dates: end: 201810
  4. AFINITOR [Suspect]
     Active Substance: EVEROLIMUS
     Dosage: 5 MG, QD (ONCE DAILY)
     Route: 048

REACTIONS (7)
  - Nausea [Recovering/Resolving]
  - Fluid retention [Unknown]
  - Hypertension [Recovered/Resolved]
  - Thrombosis [Recovered/Resolved]
  - Swelling [Unknown]
  - Nausea [Recovered/Resolved]
  - Blood creatinine increased [Recovered/Resolved]

NARRATIVE: CASE EVENT DATE: 20180725
